FAERS Safety Report 7076178-0 (Version None)
Quarter: 2010Q4

REPORT INFORMATION
  Report Type: 
  Country: None (occurrence: None)
  Receive Date: 20101101
  Receipt Date: 20101018
  Transmission Date: 20110411
  Serious: Yes (Other)
  Sender: FDA-Public Use
  Company Number: CA-US-EMD SERONO, INC.-7002079

PATIENT
  Sex: Female

DRUGS (2)
  1. REBIF [Suspect]
     Indication: RELAPSING-REMITTING MULTIPLE SCLEROSIS
     Dates: start: 20100329
  2. REBIF [Suspect]

REACTIONS (9)
  - GASTROINTESTINAL DISORDER [None]
  - HAEMATOCHEZIA [None]
  - HEPATIC ENZYME INCREASED [None]
  - MALAISE [None]
  - MYALGIA [None]
  - NAUSEA [None]
  - RASH [None]
  - STRESS [None]
  - WHITE BLOOD CELL COUNT DECREASED [None]
